FAERS Safety Report 5154201-8 (Version None)
Quarter: 2006Q4

REPORT INFORMATION
  Report Type: 
  Country: None (occurrence: None)
  Receive Date: 20061120
  Receipt Date: 20060302
  Transmission Date: 20070319
  Serious: Yes (Life-Threatening, Hospitalization, Disabling)
  Sender: FDA-Public Use
  Company Number: PHBS2006FI03332

PATIENT
  Age: 54 Year
  Sex: Male

DRUGS (3)
  1. EMCONCOR [Concomitant]
     Indication: ATRIAL FIBRILLATION
     Dosage: 5 MG/DAY
     Route: 048
     Dates: start: 20050101, end: 20060218
  2. MAREVAN [Concomitant]
     Indication: RETINAL ARTERY THROMBOSIS
     Dosage: 3 MG/DAY
     Route: 048
     Dates: start: 19860101, end: 20060218
  3. CANEF (LICENSED TO ASTRA) [Suspect]
     Indication: HYPERCHOLESTEROLAEMIA
     Dosage: 40 MG, QD
     Route: 048
     Dates: start: 20060506, end: 20060218

REACTIONS (20)
  - ABDOMINAL PAIN UPPER [None]
  - ANURIA [None]
  - CHOLECYSTECTOMY [None]
  - COLECTOMY [None]
  - COMPARTMENT SYNDROME [None]
  - DUODENAL FISTULA [None]
  - DUODENAL PERFORATION [None]
  - GALLBLADDER DISORDER [None]
  - ILEOSTOMY [None]
  - INTESTINAL ISCHAEMIA [None]
  - ISCHAEMIA [None]
  - LAPAROTOMY [None]
  - LOSS OF CONSCIOUSNESS [None]
  - OEDEMATOUS PANCREATITIS [None]
  - OLIGURIA [None]
  - OPEN WOUND [None]
  - PANCREATITIS ACUTE [None]
  - PANCREATITIS NECROTISING [None]
  - RENAL FAILURE [None]
  - VOMITING [None]
